FAERS Safety Report 22091238 (Version 1)
Quarter: 2023Q1

REPORT INFORMATION
  Report Type: Report from Study
  Country: US (occurrence: US)
  Receive Date: 20230314
  Receipt Date: 20230314
  Transmission Date: 20230417
  Serious: No
  Sender: FDA-Public Use
  Company Number: US-ETON PHARMACEUTICALS, INC-2023ETO000047

PATIENT

DRUGS (1)
  1. ALKINDI SPRINKLE [Suspect]
     Active Substance: HYDROCORTISONE
     Indication: Adrenal disorder
     Dosage: 2 MG TID, 5 MG IN MORNING AND 1MG AT NIGHT
     Route: 048
     Dates: start: 20220829

REACTIONS (3)
  - Burning sensation [Unknown]
  - Dysgeusia [Unknown]
  - Wrong technique in product usage process [Unknown]
